FAERS Safety Report 25790853 (Version 1)
Quarter: 2025Q3

REPORT INFORMATION
  Report Type: Spontaneous
  Country: US (occurrence: US)
  Receive Date: 20250911
  Receipt Date: 20250911
  Transmission Date: 20251020
  Serious: No
  Sender: GALDERMA
  Company Number: US-GALDERMA-US2025015562

PATIENT

DRUGS (1)
  1. NEMLUVIO [Suspect]
     Active Substance: NEMOLIZUMAB-ILTO
     Indication: Dermatitis atopic
     Route: 058

REACTIONS (10)
  - Fatigue [Unknown]
  - Fall [Unknown]
  - Peripheral swelling [Unknown]
  - Pain in extremity [Unknown]
  - Fungal infection [Unknown]
  - Dermatitis atopic [Unknown]
  - Diarrhoea [Unknown]
  - Myalgia [Unknown]
  - Abdominal pain [Unknown]
  - Gastroenteritis [Unknown]

NARRATIVE: CASE EVENT DATE: 20250814
